FAERS Safety Report 7003025-5 (Version None)
Quarter: 2010Q3

REPORT INFORMATION
  Report Type: 
  Country: None (occurrence: None)
  Receive Date: 20100920
  Receipt Date: 20100111
  Transmission Date: 20110219
  Serious: No
  Sender: FDA-Public Use
  Company Number: US-ASTRAZENECA-2009SE19425

PATIENT
  Age: 42 Year
  Sex: Female
  Weight: 125.2 kg

DRUGS (4)
  1. SEROQUEL [Suspect]
     Indication: BIPOLAR DISORDER
     Dosage: 100 TO 600 MG
     Route: 048
     Dates: start: 20030701, end: 20080701
  2. GEODON [Concomitant]
     Dates: start: 20080101
  3. HALDOL [Concomitant]
     Dates: start: 20020101
  4. RISPERDAL [Concomitant]
     Dates: start: 20030701

REACTIONS (6)
  - BLOOD CHOLESTEROL INCREASED [None]
  - BLOOD TRIGLYCERIDES INCREASED [None]
  - HYPERLIPIDAEMIA [None]
  - OBESITY [None]
  - TYPE 2 DIABETES MELLITUS [None]
  - WEIGHT INCREASED [None]
